FAERS Safety Report 7812493-8 (Version None)
Quarter: 2011Q4

REPORT INFORMATION
  Report Type: 
  Country: None (occurrence: None)
  Receive Date: 20111013
  Receipt Date: 20111005
  Transmission Date: 20120403
  Serious: Yes (Other)
  Sender: FDA-Public Use
  Company Number: US-ABBOTT-11P-163-0860918-00

PATIENT
  Sex: Male
  Weight: 131.66 kg

DRUGS (2)
  1. HUMIRA [Suspect]
     Indication: PSORIASIS
     Route: 058
     Dates: start: 20110101, end: 20110501
  2. HUMIRA [Suspect]
     Route: 058
     Dates: start: 20110701

REACTIONS (3)
  - LIMB INJURY [None]
  - PSORIASIS [None]
  - TENDON RUPTURE [None]
